FAERS Safety Report 7368014-X (Version None)
Quarter: 2011Q1

REPORT INFORMATION
  Report Type: 
  Country: None (occurrence: None)
  Receive Date: 20110322
  Receipt Date: 20110316
  Transmission Date: 20110831
  Serious: Yes (Other)
  Sender: FDA-Public Use
  Company Number: ES-BAYER-2011-024062

PATIENT
  Age: 60 Year
  Sex: Female

DRUGS (1)
  1. GADOVIST [Suspect]
     Indication: NUCLEAR MAGNETIC RESONANCE IMAGING
     Dosage: DAILY DOSE 12.5 ML
     Route: 042
     Dates: start: 20110307, end: 20110307

REACTIONS (5)
  - EYELID OEDEMA [None]
  - FACE OEDEMA [None]
  - LIP OEDEMA [None]
  - DYSPNOEA [None]
  - ERYTHEMA [None]
